FAERS Safety Report 7122752-2 (Version None)
Quarter: 2010Q4

REPORT INFORMATION
  Report Type: 
  Country: None (occurrence: None)
  Receive Date: 20101124
  Receipt Date: 20101119
  Transmission Date: 20110411
  Serious: Yes (Hospitalization)
  Sender: FDA-Public Use
  Company Number: GB-PFIZER INC-2010154220

PATIENT
  Age: 70 Year
  Sex: Male

DRUGS (15)
  1. AZITHROMYCIN [Suspect]
     Dosage: UNK
     Route: 048
     Dates: start: 20101014, end: 20101109
  2. ALLOPURINOL [Concomitant]
  3. ACETYLSALICYLIC ACID [Concomitant]
  4. BUMETANIDE [Concomitant]
     Dosage: UNK
     Dates: end: 20101109
  5. CANDESARTAN CILEXETIL [Concomitant]
     Dosage: UNK
     Dates: end: 20101109
  6. GLYCERYL TRINITRATE [Concomitant]
  7. ISOSORBIDE MONONITRATE [Concomitant]
  8. NEBIVOLOL [Concomitant]
  9. OMEPRAZOLE [Concomitant]
  10. PHOLCODINE LINCTUS [Concomitant]
  11. SALBUTAMOL [Concomitant]
  12. SERETIDE [Concomitant]
  13. SIMVASTATIN [Concomitant]
  14. SPIRONOLACTONE [Concomitant]
     Dosage: UNK
     Dates: end: 20101109
  15. TIOTROPIUM BROMIDE [Concomitant]

REACTIONS (4)
  - ACUTE HEPATIC FAILURE [None]
  - BRONCHIECTASIS [None]
  - RENAL FAILURE ACUTE [None]
  - TROPONIN INCREASED [None]
